FAERS Safety Report 10009376 (Version 1)
Quarter: 2014Q1

REPORT INFORMATION
  Report Type: Spontaneous
  Country: US (occurrence: US)
  Receive Date: 20140313
  Receipt Date: 20140313
  Transmission Date: 20141002
  Serious: No
  Sender: FDA-Public Use
  Company Number: US-009507513-1403USA002666

PATIENT
  Sex: Female

DRUGS (2)
  1. SINGULAIR [Suspect]
     Dosage: 1 STANDARD PACKAGE BOTTLE OF 15, 10 MG ONCE DAILY
     Route: 048
  2. SINGULAIR [Suspect]
     Route: 048

REACTIONS (2)
  - Reaction to drug excipients [Unknown]
  - Drug hypersensitivity [Unknown]
